FAERS Safety Report 15796861 (Version 2)
Quarter: 2019Q1

REPORT INFORMATION
  Report Type: Report from Study
  Country: HU (occurrence: HU)
  Receive Date: 20190108
  Receipt Date: 20190116
  Transmission Date: 20190417
  Serious: Yes (Hospitalization)
  Sender: FDA-Public Use
  Company Number: HU-TAIHO ONCOLOGY  INC-IM-2019-00001

PATIENT
  Age: 52 Year
  Sex: Female
  Weight: 92 kg

DRUGS (13)
  1. LONSURF [Suspect]
     Active Substance: TIPIRACIL HYDROCHLORIDE\TRIFLURIDINE
     Indication: ADENOCARCINOMA OF COLON
     Dosage: 70 MG (35MG/M2) BID, ON DAYS 1-5 OF EACH 14-DAY CYCLE
     Route: 048
     Dates: start: 20180927, end: 20181111
  2. OXALIPLATIN 85MG/M2 [Suspect]
     Active Substance: OXALIPLATIN
     Dosage: 85 MG/M2 ON DAY 1 OF EACH 14-DAY CYCLE
     Route: 042
     Dates: start: 20181129, end: 20181129
  3. FRONTIN [Concomitant]
     Active Substance: ALPRAZOLAM
     Indication: PANIC DISORDER
     Dosage: 0.25 MG, PRN
     Route: 048
     Dates: start: 2008
  4. AMLODIPINE BESILATE [Concomitant]
     Active Substance: AMLODIPINE BESYLATE
     Indication: HYPERTENSION
     Dosage: 10 MG, BID
     Route: 048
     Dates: start: 20180502
  5. OXALIPLATIN 85MG/M2 [Suspect]
     Active Substance: OXALIPLATIN
     Indication: ADENOCARCINOMA OF COLON
     Dosage: 85 MG/M2 ON DAY 1 OF EACH 14-DAY CYCLE
     Route: 042
     Dates: start: 20180927, end: 20181107
  6. PENTASA [Concomitant]
     Active Substance: MESALAMINE
     Indication: COLITIS ULCERATIVE
     Dosage: 1 DF, TID
     Route: 048
     Dates: start: 20180502
  7. BEVACIZUMAB 5MG/KG - CONTROL GROUP [Suspect]
     Active Substance: BEVACIZUMAB
     Indication: ADENOCARCINOMA OF COLON
     Dosage: 5 MG/M2) ON DAY 1 OF EACH 14-DAY CYCLE
     Route: 042
     Dates: start: 20180929, end: 20181107
  8. PANTOPRAZOLE SODIUM SESQUIHYDRATE [Concomitant]
     Active Substance: PANTOPRAZOLE SODIUM
     Indication: PROPHYLAXIS
     Dosage: 40 MG, BID
     Route: 048
     Dates: start: 20180704
  9. CONTRAMAL [Concomitant]
     Active Substance: TRAMADOL HYDROCHLORIDE
     Indication: ABDOMINAL PAIN UPPER
     Dosage: 50 MG, PRN
     Route: 048
     Dates: start: 20181129
  10. CLEXANE [Concomitant]
     Active Substance: ENOXAPARIN SODIUM
     Indication: DEEP VEIN THROMBOSIS
     Dosage: 2 ML, BID
     Route: 062
     Dates: start: 20181226
  11. CLEXANE [Concomitant]
     Active Substance: ENOXAPARIN SODIUM
     Indication: THROMBOSIS PROPHYLAXIS
     Dosage: 0.6 ML, QD
     Route: 062
     Dates: start: 20180523, end: 20181225
  12. BEVACIZUMAB 5MG/KG - CONTROL GROUP [Suspect]
     Active Substance: BEVACIZUMAB
     Dosage: 5 MG/M2) ON DAY 1 OF EACH 14-DAY CYCLE
     Route: 042
     Dates: start: 20181129, end: 20181129
  13. COAPROVEL [Concomitant]
     Active Substance: HYDROCHLOROTHIAZIDE\IRBESARTAN
     Indication: HYPERTENSION
     Dosage: 12.5 MG, QD
     Route: 048

REACTIONS (1)
  - Deep vein thrombosis [Recovering/Resolving]

NARRATIVE: CASE EVENT DATE: 20181225
